FAERS Safety Report 13320373 (Version 1)
Quarter: 2017Q1

REPORT INFORMATION
  Report Type: Spontaneous
  Country: CA (occurrence: CA)
  Receive Date: 20170309
  Receipt Date: 20170309
  Transmission Date: 20170428
  Serious: Yes (Other)
  Sender: FDA-Public Use
  Company Number: CA-TEVA-747195ACC

PATIENT
  Age: 46 Year
  Sex: Female
  Weight: 54.48 kg

DRUGS (1)
  1. TRAZODONE [Suspect]
     Active Substance: TRAZODONE HYDROCHLORIDE
     Indication: SLEEP DISORDER
     Dosage: 50 MILLIGRAM DAILY;
     Route: 048

REACTIONS (4)
  - Loss of consciousness [Recovered/Resolved]
  - Aggression [Recovered/Resolved]
  - Impaired quality of life [Recovered/Resolved]
  - Amnesia [Recovered/Resolved]
